FAERS Safety Report 7402716-1 (Version None)
Quarter: 2011Q2

REPORT INFORMATION
  Report Type: 
  Country: None (occurrence: None)
  Receive Date: 20110408
  Receipt Date: 20110405
  Transmission Date: 20111010
  Serious: Yes (Death, Hospitalization, Other)
  Sender: FDA-Public Use
  Company Number: US-AMGEN-US341085

PATIENT
  Age: 63 Year
  Sex: Male

DRUGS (3)
  1. NPLATE [Suspect]
     Indication: IDIOPATHIC THROMBOCYTOPENIC PURPURA
     Dosage: UNK UNK, UNK
     Dates: start: 20080930, end: 20090227
  2. ZOLEDRONIC ACID [Concomitant]
     Dosage: UNK UNK, UNK
  3. GEMCITABINE [Concomitant]
     Dosage: UNK UNK, UNK

REACTIONS (8)
  - METASTASES TO LIVER [None]
  - FUNGAL INFECTION [None]
  - RENAL FAILURE [None]
  - METASTASES TO CENTRAL NERVOUS SYSTEM [None]
  - CEREBROVASCULAR ACCIDENT [None]
  - METASTASES TO BONE [None]
  - METASTASES TO ADRENALS [None]
  - DRUG INEFFECTIVE [None]
